FAERS Safety Report 8089621-5 (Version None)
Quarter: 2012Q1

REPORT INFORMATION
  Report Type: 
  Country: None (occurrence: None)
  Receive Date: 20120131
  Receipt Date: 20120123
  Transmission Date: 20120608
  Serious: Yes (Hospitalization)
  Sender: FDA-Public Use
  Company Number: US-AMGEN-USASP2012004714

PATIENT
  Age: 41 Year
  Sex: Female

DRUGS (1)
  1. ENBREL [Suspect]
     Indication: PSORIATIC ARTHROPATHY
     Dosage: 50 MG, QWK
     Dates: start: 20100929

REACTIONS (5)
  - RENAL IMPAIRMENT [None]
  - INFECTION [None]
  - INJECTION SITE PAIN [None]
  - HYSTERECTOMY [None]
  - HAEMOGLOBIN DECREASED [None]
